FAERS Safety Report 4309198-7 (Version None)
Quarter: 2004Q1

REPORT INFORMATION
  Report Type: 
  Country: None (occurrence: None)
  Receive Date: 20040301
  Receipt Date: 20040212
  Transmission Date: 20041129
  Serious: No
  Sender: FDA-Public Use
  Company Number: A04200400151

PATIENT

DRUGS (1)
  1. PLAVIX [Suspect]
     Dosage: NOT REPORTED; ORAL (NI - TIME TO ONSET: UNKNOWN)
     Route: 048

REACTIONS (3)
  - PETECHIAE [None]
  - RENAL FAILURE CHRONIC [None]
  - VASCULITIS NECROTISING [None]
